FAERS Safety Report 19243974 (Version 2)
Quarter: 2021Q3

REPORT INFORMATION
  Report Type: Spontaneous
  Country: DE (occurrence: DE)
  Receive Date: 20210512
  Receipt Date: 20210707
  Transmission Date: 20211014
  Serious: Yes (Other)
  Sender: FDA-Public Use
  Company Number: DE-CELLTRION INC.-2021DE006229

PATIENT

DRUGS (1)
  1. RITUXIMAB (UNKNOWN) [Suspect]
     Active Substance: RITUXIMAB
     Indication: RHEUMATOID ARTHRITIS
     Route: 065

REACTIONS (5)
  - Staphylococcal infection [Unknown]
  - Lymphadenopathy [Unknown]
  - Hypogammaglobulinaemia [Unknown]
  - Respiratory tract infection [Unknown]
  - Secondary immunodeficiency [Unknown]
